FAERS Safety Report 10570862 (Version 5)
Quarter: 2015Q2

REPORT INFORMATION
  Report Type: Spontaneous
  Country: US (occurrence: US)
  Receive Date: 20141107
  Receipt Date: 20150527
  Transmission Date: 20150821
  Serious: Yes (Life-Threatening, Hospitalization, Other)
  Sender: FDA-Public Use
  Company Number: PHHY2014US010304

PATIENT
  Age: 11 Year
  Sex: Female

DRUGS (8)
  1. BACLOFEN. [Suspect]
     Active Substance: BACLOFEN
     Dosage: 2 ML (5 MG/ML), QID (AS REPORTED)
     Route: 048
  2. LIORESAL [Suspect]
     Active Substance: BACLOFEN
     Indication: MUSCLE SPASTICITY
     Dosage: 49.96 UG, PER DAY
     Route: 037
  3. TENEX [Suspect]
     Active Substance: GUANFACINE HYDROCHLORIDE
     Indication: PRODUCT USED FOR UNKNOWN INDICATION
     Dosage: 1 MG, QHS
     Route: 065
  4. BACLOFEN. [Suspect]
     Active Substance: BACLOFEN
     Indication: PRODUCT USED FOR UNKNOWN INDICATION
     Dosage: 10 MG, TID
     Route: 048
  5. LIORESAL [Suspect]
     Active Substance: BACLOFEN
     Dosage: 3 UG/ DAY
     Route: 037
  6. CLONAZEPAM. [Suspect]
     Active Substance: CLONAZEPAM
     Indication: PRODUCT USED FOR UNKNOWN INDICATION
     Dosage: 0.5 MG, TID
     Route: 065
  7. LIORESAL [Suspect]
     Active Substance: BACLOFEN
     Dosage: 24 UG, PER DAY
     Route: 037
     Dates: start: 20140519
  8. MELATONIN [Suspect]
     Active Substance: MELATONIN
     Indication: PRODUCT USED FOR UNKNOWN INDICATION
     Dosage: 0.5 DF (3MG), QHS
     Route: 065

REACTIONS (16)
  - Shunt infection [Recovering/Resolving]
  - Seroma [Unknown]
  - Lethargy [Recovered/Resolved]
  - Urinary tract infection [Recovered/Resolved]
  - Staphylococcus test positive [Recovering/Resolving]
  - CSF culture positive [Recovering/Resolving]
  - Cerebrospinal fluid leakage [Recovering/Resolving]
  - Decreased appetite [Recovered/Resolved]
  - Implant site infection [Recovering/Resolving]
  - Pyrexia [Recovering/Resolving]
  - Wound [Recovering/Resolving]
  - Body temperature increased [Recovered/Resolved]
  - Agitation [Recovering/Resolving]
  - Decubitus ulcer [Recovering/Resolving]
  - Hydrocephalus [Recovering/Resolving]
  - Staphylococcal infection [Recovering/Resolving]

NARRATIVE: CASE EVENT DATE: 20140115
